FAERS Safety Report 18085916 (Version 1)
Quarter: 2020Q3

REPORT INFORMATION
  Report Type: Spontaneous
  Country: US (occurrence: US)
  Receive Date: 20200728
  Receipt Date: 20200728
  Transmission Date: 20201103
  Serious: No
  Sender: FDA-Public Use
  Company Number: None

PATIENT
  Age: 59 Year
  Sex: Male
  Weight: 134.1 kg

DRUGS (4)
  1. GAZYVA [Suspect]
     Active Substance: OBINUTUZUMAB
     Indication: CHRONIC LYMPHOCYTIC LEUKAEMIA
     Dosage: ?          OTHER FREQUENCY:X1;?
     Route: 042
     Dates: start: 20200728, end: 20200728
  2. DIPHENHYDRAMINE 50MG IN 100ML NS [Concomitant]
     Dates: start: 20200728, end: 20200728
  3. DEXAMETHASONE 20MG IN 100ML NS [Concomitant]
     Dates: start: 20200728, end: 20200728
  4. ACETAMINOPHEN 650MG TAB [Concomitant]
     Dates: start: 20200728, end: 20200728

REACTIONS (3)
  - Pain [None]
  - Chills [None]
  - Pyrexia [None]

NARRATIVE: CASE EVENT DATE: 20200728
